FAERS Safety Report 17089482 (Version 2)
Quarter: 2020Q1

REPORT INFORMATION
  Report Type: Spontaneous
  Country: CA (occurrence: CA)
  Receive Date: 20191128
  Receipt Date: 20200205
  Transmission Date: 20200409
  Serious: Yes (Death, Hospitalization, Other)
  Sender: FDA-Public Use
  Company Number: CA-TEVA-2019-CA-1141287

PATIENT
  Age: 16 Year
  Sex: Female

DRUGS (23)
  1. ETOPOSIDE. [Suspect]
     Active Substance: ETOPOSIDE
     Indication: STILL^S DISEASE
     Route: 065
  2. CICLOSPORIN [Suspect]
     Active Substance: CYCLOSPORINE
     Indication: JUVENILE IDIOPATHIC ARTHRITIS
     Route: 048
  3. ALENDRONATE SODIUM. [Concomitant]
     Active Substance: ALENDRONATE SODIUM
     Indication: PRODUCT USED FOR UNKNOWN INDICATION
     Route: 065
  4. IRON [Concomitant]
     Active Substance: IRON
     Indication: PRODUCT USED FOR UNKNOWN INDICATION
     Route: 065
  5. ETOPOSIDE. [Suspect]
     Active Substance: ETOPOSIDE
     Indication: JUVENILE IDIOPATHIC ARTHRITIS
  6. ENBREL [Suspect]
     Active Substance: ETANERCEPT
     Indication: STILL^S DISEASE
     Route: 058
  7. HYDROXYCHLOROQUINE [Concomitant]
     Active Substance: HYDROXYCHLOROQUINE
     Indication: PRODUCT USED FOR UNKNOWN INDICATION
     Route: 065
  8. METHOTREXATE. [Suspect]
     Active Substance: METHOTREXATE
     Indication: STILL^S DISEASE
     Route: 030
  9. THALOMID [Suspect]
     Active Substance: THALIDOMIDE
     Indication: OFF LABEL USE
  10. AZATHIOPRINE. [Concomitant]
     Active Substance: AZATHIOPRINE
     Indication: PRODUCT USED FOR UNKNOWN INDICATION
     Route: 065
  11. ENBREL [Suspect]
     Active Substance: ETANERCEPT
     Route: 065
  12. TACROLIMUS. [Suspect]
     Active Substance: TACROLIMUS
     Indication: JUVENILE IDIOPATHIC ARTHRITIS
  13. PREDNISONE. [Concomitant]
     Active Substance: PREDNISONE
     Indication: PRODUCT USED FOR UNKNOWN INDICATION
     Route: 065
  14. ANAKINRA [Suspect]
     Active Substance: ANAKINRA
     Indication: STILL^S DISEASE
     Route: 065
  15. REMICADE [Suspect]
     Active Substance: INFLIXIMAB
     Indication: STILL^S DISEASE
     Route: 041
  16. ANAKINRA [Suspect]
     Active Substance: ANAKINRA
     Indication: JUVENILE IDIOPATHIC ARTHRITIS
     Route: 058
  17. INFLIXIMAB [Suspect]
     Active Substance: INFLIXIMAB
     Indication: STILL^S DISEASE
     Dosage: .3333 MILLIGRAM DAILY;
     Route: 041
  18. THALOMID [Suspect]
     Active Substance: THALIDOMIDE
     Indication: STILL^S DISEASE
     Route: 048
  19. CALCIUM [Concomitant]
     Active Substance: CALCIUM
     Indication: PRODUCT USED FOR UNKNOWN INDICATION
     Route: 065
  20. LEFLUNOMIDE. [Concomitant]
     Active Substance: LEFLUNOMIDE
     Indication: PRODUCT USED FOR UNKNOWN INDICATION
     Route: 065
  21. TACROLIMUS. [Suspect]
     Active Substance: TACROLIMUS
     Indication: STILL^S DISEASE
     Route: 065
  22. ACETAZOLAMIDE. [Concomitant]
     Active Substance: ACETAZOLAMIDE
     Indication: PRODUCT USED FOR UNKNOWN INDICATION
     Route: 065
  23. CYCLOPHOSPHAMIDE. [Concomitant]
     Active Substance: CYCLOPHOSPHAMIDE
     Indication: PRODUCT USED FOR UNKNOWN INDICATION
     Route: 065

REACTIONS (10)
  - Product use in unapproved indication [Fatal]
  - Pyrexia [Fatal]
  - Splenomegaly [Fatal]
  - Tachycardia [Fatal]
  - Hair follicle tumour benign [Fatal]
  - Hypotension [Fatal]
  - Hepatosplenic T-cell lymphoma [Fatal]
  - Thrombocytopenia [Fatal]
  - Complications of bone marrow transplant [Fatal]
  - Abdominal pain upper [Fatal]
